FAERS Safety Report 7801870-7 (Version None)
Quarter: 2011Q4

REPORT INFORMATION
  Report Type: 
  Country: None (occurrence: None)
  Receive Date: 20111007
  Receipt Date: 20111001
  Transmission Date: 20120403
  Serious: Yes (Hospitalization, Other)
  Sender: FDA-Public Use
  Company Number: US-PFIZER INC-2011008567

PATIENT
  Sex: Male
  Weight: 70.295 kg

DRUGS (7)
  1. KLONOPIN [Suspect]
     Indication: RESTLESSNESS
     Dosage: 1 MG, 2X/DAY
  2. VISTARIL [Concomitant]
     Dosage: UNK
  3. FISH OIL [Concomitant]
     Dosage: UNK
  4. GEODON [Suspect]
     Indication: AFFECTIVE DISORDER
  5. PAXIL [Concomitant]
     Dosage: UNK
  6. LUVOX [Concomitant]
     Dosage: UNK
  7. GEODON [Suspect]
     Indication: DEPRESSION
     Dosage: 20 MG, DAILY
     Dates: start: 20060401, end: 20060101

REACTIONS (21)
  - MENTAL DISORDER [None]
  - FEAR [None]
  - WEIGHT INCREASED [None]
  - NERVOUSNESS [None]
  - RESTLESSNESS [None]
  - PALPITATIONS [None]
  - FEELING ABNORMAL [None]
  - AKATHISIA [None]
  - PANIC ATTACK [None]
  - SUICIDAL IDEATION [None]
  - ANXIETY [None]
  - DRUG WITHDRAWAL SYNDROME [None]
  - MOOD ALTERED [None]
  - STRESS [None]
  - DEPRESSION [None]
  - AGITATION [None]
  - PARADOXICAL DRUG REACTION [None]
  - SUICIDE ATTEMPT [None]
  - CHEST DISCOMFORT [None]
  - PARANOIA [None]
  - AGGRESSION [None]
